FAERS Safety Report 6570306-9 (Version None)
Quarter: 2010Q1

REPORT INFORMATION
  Report Type: 
  Country: None (occurrence: None)
  Receive Date: 20100204
  Receipt Date: 20100126
  Transmission Date: 20100710
  Serious: Yes (Other)
  Sender: FDA-Public Use
  Company Number: BR-BRISTOL-MYERS SQUIBB COMPANY-14955702

PATIENT
  Age: 57 Year
  Sex: Male
  Weight: 113 kg

DRUGS (9)
  1. APROVEL TABS 150 MG [Suspect]
     Indication: BLOOD PRESSURE
     Dosage: 1 DF = 2 TABS 2003-MAY2007(BID) MAY2007-ONG(TID)
     Route: 048
     Dates: start: 20030101
  2. ATENSINA [Suspect]
     Indication: BLOOD PRESSURE
     Route: 048
     Dates: start: 20030101, end: 20070501
  3. ASPIRIN [Concomitant]
     Indication: COAGULOPATHY
     Dosage: 2 DF = 2TAB(100MG)
     Route: 048
     Dates: start: 19890101
  4. HYGROTON [Concomitant]
     Indication: BLOOD PRESSURE
     Dosage: 1 TAB AT 12:00PM
     Route: 048
     Dates: start: 20030101
  5. AMLODIPINE [Concomitant]
     Indication: BLOOD PRESSURE
     Dosage: 1 TAB AT MNG + 1 AT NIGHT
     Route: 048
     Dates: start: 20030101
  6. SUSTRATE [Concomitant]
     Indication: BLOOD PRESSURE
     Dosage: 1 IN MNG,IN NOON,NIGHT
     Route: 048
     Dates: start: 20030101
  7. SIMVASTATIN [Concomitant]
     Indication: BLOOD CHOLESTEROL INCREASED
     Dosage: 1 TAB AT NIGHT
     Route: 048
     Dates: start: 20030101
  8. CARVEDILOL [Concomitant]
     Dosage: 1 TAB IN MNG + 1 IN NIGHT
     Route: 048
     Dates: start: 20070501
  9. DIGOXIN [Concomitant]
     Dosage: 1 DF= 1/2 TAB DIGOXINE 0.25MG
     Route: 048
     Dates: start: 20070501

REACTIONS (3)
  - ARTERIAL OCCLUSIVE DISEASE [None]
  - ERECTILE DYSFUNCTION [None]
  - MEDICATION ERROR [None]
